FAERS Safety Report 8488368-0 (Version None)
Quarter: 2012Q3

REPORT INFORMATION
  Report Type: 
  Country: None (occurrence: None)
  Receive Date: 20120705
  Receipt Date: 20120624
  Transmission Date: 20120928
  Serious: Yes (Hospitalization)
  Sender: FDA-Public Use
  Company Number: IL-ELI_LILLY_AND_COMPANY-IL201206008188

PATIENT
  Sex: Female

DRUGS (9)
  1. OMEPRAZOLE (PRISOLEC) [Concomitant]
  2. ZYPREXA [Suspect]
  3. LEVOTHYROXINE SODIUM [Concomitant]
  4. VITAMIN D [Concomitant]
  5. LAMICTAL [Concomitant]
  6. AMLODIPINE [Concomitant]
  7. FORTEO [Suspect]
     Indication: OSTEOPOROSIS
     Dosage: 20 UG, QD
     Route: 058
     Dates: start: 20100708
  8. RAMIPRIL [Concomitant]
  9. MICROPIRIN [Concomitant]

REACTIONS (1)
  - MENTAL DISORDER [None]
